FAERS Safety Report 25366448 (Version 1)
Quarter: 2025Q2

REPORT INFORMATION
  Report Type: Spontaneous
  Country: US (occurrence: US)
  Receive Date: 20250528
  Receipt Date: 20250528
  Transmission Date: 20250716
  Serious: No
  Sender: TEVA
  Company Number: US-TEVA-VS-3334423

PATIENT
  Sex: Male

DRUGS (1)
  1. RASAGILINE MESYLATE [Suspect]
     Active Substance: RASAGILINE MESYLATE
     Indication: Product used for unknown indication
     Route: 048

REACTIONS (3)
  - Bradykinesia [Unknown]
  - Musculoskeletal stiffness [Unknown]
  - Muscle rigidity [Unknown]
